FAERS Safety Report 5821304-1 (Version None)
Quarter: 2008Q3

REPORT INFORMATION
  Report Type: 
  Country: None (occurrence: None)
  Receive Date: 20080722
  Receipt Date: 20080722
  Transmission Date: 20090109
  Serious: Yes (Other)
  Sender: FDA-Public Use
  Company Number: None

PATIENT
  Sex: Female
  Weight: 78.37 kg

DRUGS (1)
  1. OPTIRAY 320 [Suspect]
     Indication: COMPUTERISED TOMOGRAM
     Dosage: 125 ML

REACTIONS (3)
  - OBSTRUCTIVE AIRWAYS DISORDER [None]
  - PHARYNGEAL OEDEMA [None]
  - SWELLING FACE [None]
